FAERS Safety Report 13711764 (Version 7)
Quarter: 2018Q1

REPORT INFORMATION
  Report Type: Report from Study
  Country: JP (occurrence: JP)
  Receive Date: 20170703
  Receipt Date: 20180320
  Transmission Date: 20180508
  Serious: Yes (Death, Hospitalization, Other)
  Sender: FDA-Public Use
  Company Number: JP-ARIAD PHARMACEUTICALS, INC-2017JP008479

PATIENT
  Age: 69 Year
  Sex: Male
  Weight: 61 kg

DRUGS (8)
  1. RITUXAN [Concomitant]
     Active Substance: RITUXIMAB
     Indication: ACUTE LYMPHOCYTIC LEUKAEMIA
     Dosage: UNK
     Route: 065
     Dates: start: 20151006
  2. ONCOVIN [Concomitant]
     Active Substance: VINCRISTINE SULFATE
     Indication: ACUTE LYMPHOCYTIC LEUKAEMIA
     Dosage: UNK
     Route: 065
     Dates: start: 20151006, end: 20160509
  3. PONATINIB [Suspect]
     Active Substance: PONATINIB
     Indication: ACUTE LYMPHOCYTIC LEUKAEMIA
     Dosage: 15 MG, DAILY DOSE
     Route: 048
     Dates: start: 20170131
  4. ENDOXAN [Concomitant]
     Active Substance: CYCLOPHOSPHAMIDE
     Indication: ACUTE LYMPHOCYTIC LEUKAEMIA
     Dosage: UNK
     Route: 065
     Dates: start: 20151006
  5. ONCOVIN [Concomitant]
     Active Substance: VINCRISTINE SULFATE
     Dosage: UNK
     Route: 065
     Dates: start: 20170516, end: 20170516
  6. PONATINIB [Suspect]
     Active Substance: PONATINIB
     Dosage: 30 MG, DAILY DOSE
     Route: 048
     Dates: start: 201705
  7. PONATINIB [Suspect]
     Active Substance: PONATINIB
     Dosage: 15 MG, DAILY DOSE
     Route: 048
     Dates: start: 20170614, end: 20170629
  8. BAYASPIRIN [Concomitant]
     Active Substance: ASPIRIN
     Indication: PROPHYLAXIS
     Dosage: UNK
     Route: 065
     Dates: start: 20170623, end: 20170629

REACTIONS (2)
  - Acute lymphocytic leukaemia [Unknown]
  - Myocardial infarction [Fatal]

NARRATIVE: CASE EVENT DATE: 201705
